FAERS Safety Report 19412583 (Version 3)
Quarter: 2021Q3

REPORT INFORMATION
  Report Type: Spontaneous
  Country: GB (occurrence: GB)
  Receive Date: 20210614
  Receipt Date: 20210722
  Transmission Date: 20211014
  Serious: Yes (Other)
  Sender: FDA-Public Use
  Company Number: GB-PURDUE-USA-2021-0269717

PATIENT
  Age: 68 Year
  Sex: Female

DRUGS (4)
  1. MST CONTINUS [Suspect]
     Active Substance: MORPHINE SULFATE
     Dosage: UNK (STRENGTH 5MG)
     Route: 065
     Dates: start: 201901
  2. NAPROXEN. [Concomitant]
     Active Substance: NAPROXEN
     Dosage: 230 MG, BID
  3. AMITRIPTYLINE [Concomitant]
     Active Substance: AMITRIPTYLINE
     Dosage: 5 MG, NOCTE
  4. MST CONTINUS [Suspect]
     Active Substance: MORPHINE SULFATE
     Indication: OSTEOARTHRITIS
     Dosage: 5MG
     Route: 065

REACTIONS (2)
  - Urinary incontinence [Unknown]
  - Neurogenic bladder [Recovering/Resolving]
